FAERS Safety Report 5341494-7 (Version None)
Quarter: 2007Q2

REPORT INFORMATION
  Report Type: 
  Country: None (occurrence: None)
  Receive Date: 20070530
  Receipt Date: 20070530
  Transmission Date: 20071010
  Serious: Yes (Hospitalization)
  Sender: FDA-Public Use
  Company Number: None

PATIENT
  Age: 78 Year
  Sex: Female

DRUGS (10)
  1. LISINOPRIL [Suspect]
     Indication: HYPERTENSION
     Dosage: ORAL
     Route: 048
     Dates: start: 20061009, end: 20061026
  2. MECLIZINE [Concomitant]
  3. HYDROCHLOROTHIAZIDE [Concomitant]
  4. PROPOXYPHENE HYDROCHLORIDE [Concomitant]
  5. IBU [Concomitant]
  6. ALBUTEROL [Concomitant]
  7. GEMFIBROZIL [Concomitant]
  8. ASPIRIN [Concomitant]
  9. CAPTOPRIL [Concomitant]
  10. SINGULAIR [Concomitant]

REACTIONS (3)
  - ANGIOEDEMA [None]
  - POST PROCEDURAL HAEMORRHAGE [None]
  - RESPIRATORY DISTRESS [None]
